FAERS Safety Report 17504888 (Version 1)
Quarter: 2020Q1

REPORT INFORMATION
  Report Type: Spontaneous
  Country: US (occurrence: US)
  Receive Date: 20200305
  Receipt Date: 20200305
  Transmission Date: 20200409
  Serious: No
  Sender: FDA-Public Use
  Company Number: US-BIODELIVERY SCIENCES INTERNATIONAL-2020BDSI0018

PATIENT
  Sex: Male
  Weight: 74.91 kg

DRUGS (3)
  1. BUPRENORPHINE. [Suspect]
     Active Substance: BUPRENORPHINE
     Indication: PAIN
     Route: 002
     Dates: start: 201911
  2. PARACETAMOL/OXYCODONE HYDROCHLORIDE [Concomitant]
     Active Substance: ACETAMINOPHEN\OXYCODONE HYDROCHLORIDE
     Indication: PAIN
     Dosage: 1 OR 2 TABLETS A DAY
  3. BUPRENORPHINE. [Suspect]
     Active Substance: BUPRENORPHINE

REACTIONS (4)
  - Product administration error [Unknown]
  - Oral administration complication [Unknown]
  - Wrong technique in product usage process [Recovered/Resolved]
  - Product adhesion issue [Unknown]

NARRATIVE: CASE EVENT DATE: 2019
